FAERS Safety Report 7400815-1 (Version None)
Quarter: 2011Q2

REPORT INFORMATION
  Report Type: 
  Country: None (occurrence: None)
  Receive Date: 20110407
  Receipt Date: 20110111
  Transmission Date: 20111010
  Serious: Yes (Death)
  Sender: FDA-Public Use
  Company Number: CA-BAYER-2010-003190

PATIENT
  Age: 24 Year
  Sex: Female
  Weight: 149.66 kg

DRUGS (2)
  1. YAZ [Suspect]
     Indication: CONTRACEPTION
     Dosage: UNK
     Dates: start: 20100819
  2. SYMBICORT [Concomitant]

REACTIONS (4)
  - DYSPNOEA [None]
  - PULMONARY EMBOLISM [None]
  - CIRCULATORY COLLAPSE [None]
  - EMBOLISM VENOUS [None]
